FAERS Safety Report 6277446-2 (Version None)
Quarter: 2009Q3

REPORT INFORMATION
  Report Type: 
  Country: None (occurrence: None)
  Receive Date: 20090720
  Receipt Date: 20090709
  Transmission Date: 20100115
  Serious: Yes (Hospitalization)
  Sender: FDA-Public Use
  Company Number: 2008JP002329

PATIENT
  Age: 58 Year
  Sex: Male
  Weight: 70 kg

DRUGS (31)
  1. TACROLIMUS [Suspect]
     Indication: LUPUS NEPHRITIS
     Dosage: 3 MG, D, ORAL
     Route: 048
     Dates: start: 20071003, end: 20090114
  2. PREDNISOLONE [Suspect]
     Indication: LUPUS NEPHRITIS
     Dosage: SEE IMAGE
     Route: 048
     Dates: end: 20071211
  3. PREDNISOLONE [Suspect]
     Indication: LUPUS NEPHRITIS
     Dosage: SEE IMAGE
     Route: 048
     Dates: start: 20071212, end: 20080122
  4. PREDNISOLONE [Suspect]
     Indication: LUPUS NEPHRITIS
     Dosage: SEE IMAGE
     Route: 048
     Dates: start: 20080123, end: 20081118
  5. PREDNISOLONE [Suspect]
     Indication: LUPUS NEPHRITIS
     Dosage: SEE IMAGE
     Route: 048
     Dates: start: 20081119, end: 20090113
  6. PREDNISOLONE [Suspect]
     Indication: LUPUS NEPHRITIS
     Dosage: SEE IMAGE
     Route: 048
     Dates: start: 20090117, end: 20090123
  7. PREDNISOLONE [Suspect]
     Indication: LUPUS NEPHRITIS
     Dosage: SEE IMAGE
     Route: 048
     Dates: start: 20090124, end: 20090206
  8. PREDNISOLONE [Suspect]
     Indication: LUPUS NEPHRITIS
     Dosage: SEE IMAGE
     Route: 048
     Dates: start: 20090207, end: 20090212
  9. PREDNISOLONE [Suspect]
     Indication: LUPUS NEPHRITIS
     Dosage: SEE IMAGE
     Route: 048
     Dates: start: 20090213, end: 20090309
  10. PREDNISOLONE [Suspect]
     Indication: LUPUS NEPHRITIS
     Dosage: SEE IMAGE
     Route: 048
     Dates: start: 20090310, end: 20090407
  11. PREDNISOLONE [Suspect]
     Indication: LUPUS NEPHRITIS
     Dosage: SEE IMAGE
     Route: 048
     Dates: start: 20090408, end: 20090519
  12. PREDNISOLONE [Suspect]
     Indication: LUPUS NEPHRITIS
     Dosage: SEE IMAGE
     Route: 048
     Dates: start: 20090520, end: 20090617
  13. RHEUMATREX [Suspect]
     Indication: LUPUS NEPHRITIS
     Dosage: 6 MG, WEEKLY, ORAL, 8 MG, WEEKLY, ORAL, 10 MG, WEEKLY, ORAL, 12 MG, WEEKLY, ORAL
     Route: 048
     Dates: start: 20071128, end: 20071211
  14. RHEUMATREX [Suspect]
     Indication: LUPUS NEPHRITIS
     Dosage: 6 MG, WEEKLY, ORAL, 8 MG, WEEKLY, ORAL, 10 MG, WEEKLY, ORAL, 12 MG, WEEKLY, ORAL
     Route: 048
     Dates: start: 20071212, end: 20080108
  15. RHEUMATREX [Suspect]
     Indication: LUPUS NEPHRITIS
     Dosage: 6 MG, WEEKLY, ORAL, 8 MG, WEEKLY, ORAL, 10 MG, WEEKLY, ORAL, 12 MG, WEEKLY, ORAL
     Route: 048
     Dates: start: 20080109, end: 20080506
  16. RHEUMATREX [Suspect]
     Indication: LUPUS NEPHRITIS
     Dosage: 6 MG, WEEKLY, ORAL, 8 MG, WEEKLY, ORAL, 10 MG, WEEKLY, ORAL, 12 MG, WEEKLY, ORAL
     Route: 048
     Dates: start: 20080507, end: 20090114
  17. ENBREL [Suspect]
     Indication: RHEUMATOID ARTHRITIS
     Dosage: SUBCUTANEOUS
     Route: 058
     Dates: start: 20081006, end: 20090114
  18. BAYASPIRIN PER ORAL NOS [Concomitant]
  19. SELBEX (TEPRENONE) PER ORAL NOS [Concomitant]
  20. JUVELA NICOTINATE (TOCOPHERYL NICOTINATE) PER ORAL NOS [Concomitant]
  21. FOLIAMIN (FOLIC ACID) PER ORAL NOS [Concomitant]
  22. ANPLAG (SARPOGRELATE HYDROCHLORIDE) PER ORAL NOS [Concomitant]
  23. OPALMON (LIMAPROST) PER ORAL NOS [Concomitant]
  24. MUCODYNE (CARBOCISTEINE) PER ORAL NOS [Concomitant]
  25. GARENOXACIN (GARENOXACIN) PER ORAL NOS [Concomitant]
  26. OMEPRAL PER ORAL NOS [Concomitant]
  27. SELTOUCH (FELBINAC) [Concomitant]
  28. RYSMON TG (TIMOLOL MALEATE) EYE DROP [Concomitant]
  29. TRAVATAN Z (TRAVOPROST) EYE DROP [Concomitant]
  30. AZOPT (BRINZOLAMIDE) EYE DROP [Concomitant]
  31. ITRACONAZOLE [Concomitant]

REACTIONS (8)
  - ERYTHEMA NODOSUM [None]
  - GASTRIC ULCER [None]
  - GLAUCOMA [None]
  - NASAL ULCER [None]
  - PHARYNGITIS [None]
  - PNEUMOCYSTIS JIROVECI PNEUMONIA [None]
  - RASH [None]
  - RHEUMATOID NODULE [None]
